FAERS Safety Report 5928552-0 (Version None)
Quarter: 2008Q4

REPORT INFORMATION
  Report Type: 
  Country: None (occurrence: None)
  Receive Date: 20081020
  Receipt Date: 20080306
  Transmission Date: 20090506
  Serious: Yes (Hospitalization)
  Sender: FDA-Public Use
  Company Number: CL000332008

PATIENT
  Age: 41 Year
  Sex: Female

DRUGS (2)
  1. CIPROFLOXACIN [Suspect]
     Indication: GASTROENTERITIS
     Dosage: 250MG
     Route: 048
  2. ALVERINE [Suspect]
     Indication: ABDOMINAL PAIN
     Dosage: 120MG
     Route: 048
     Dates: start: 20080424, end: 20080430

REACTIONS (6)
  - AMNESIA [None]
  - DYSPHAGIA [None]
  - LOSS OF CONSCIOUSNESS [None]
  - MUSCULAR WEAKNESS [None]
  - SPEECH DISORDER [None]
  - TACHYCARDIA [None]
